FAERS Safety Report 15350855 (Version 1)
Quarter: 2018Q3

REPORT INFORMATION
  Report Type: Spontaneous
  Country: IE (occurrence: IE)
  Receive Date: 20180905
  Receipt Date: 20180905
  Transmission Date: 20181010
  Serious: Yes (Hospitalization)
  Sender: FDA-Public Use
  Company Number: IE-ASTRAZENECA-2018SF11253

PATIENT
  Age: 80 Year
  Sex: Male
  Weight: 90 kg

DRUGS (10)
  1. DAPAGLIFLOZIN. [Suspect]
     Active Substance: DAPAGLIFLOZIN
     Indication: TYPE 2 DIABETES MELLITUS
     Route: 048
     Dates: start: 20160503, end: 20180722
  2. BISOPROLOL [Concomitant]
     Active Substance: BISOPROLOL
     Indication: ATRIAL FIBRILLATION
  3. ASPIRIN (GENERIC) [Concomitant]
     Active Substance: ASPIRIN
     Indication: PROPHYLAXIS
  4. ESOMEPRAZOLE [Concomitant]
     Active Substance: ESOMEPRAZOLE
     Indication: GASTROOESOPHAGEAL REFLUX PROPHYLAXIS
  5. GLICLAZIDE [Concomitant]
     Active Substance: GLICLAZIDE
     Indication: TYPE 2 DIABETES MELLITUS
  6. QUETIAPINE. [Concomitant]
     Active Substance: QUETIAPINE
     Indication: AGITATION
  7. METFORMIN / SITAGLIPTIN [Concomitant]
     Indication: TYPE 2 DIABETES MELLITUS
     Dosage: 850 / 50 MG OD
  8. SERTRALINE [Concomitant]
     Active Substance: SERTRALINE HYDROCHLORIDE
     Indication: DEPRESSED MOOD
  9. GALANTAMINE. [Concomitant]
     Active Substance: GALANTAMINE
     Indication: COGNITIVE DISORDER
  10. PARACETAMOL [Concomitant]
     Active Substance: ACETAMINOPHEN
     Indication: PAIN

REACTIONS (4)
  - Diabetic ketoacidosis [Recovered/Resolved]
  - Loss of consciousness [Recovered/Resolved]
  - Ketonuria [Recovered/Resolved]
  - Blood glucose abnormal [Recovered/Resolved]

NARRATIVE: CASE EVENT DATE: 20180722
